FAERS Safety Report 10176458 (Version 2)
Quarter: 2014Q2

REPORT INFORMATION
  Report Type: Spontaneous
  Country: FR (occurrence: FR)
  Receive Date: 20140516
  Receipt Date: 20140527
  Transmission Date: 20141212
  Serious: Yes (Hospitalization, Other)
  Sender: FDA-Public Use
  Company Number: FR-ABBVIE-14P-056-1235956-00

PATIENT
  Age: 64 Year
  Sex: Female

DRUGS (8)
  1. HUMIRA [Suspect]
     Indication: CROHN^S DISEASE
     Route: 058
     Dates: start: 20080729, end: 200810
  2. REMICADE [Suspect]
     Indication: CROHN^S DISEASE
     Dosage: 400 MG TO 100MG PER INJECTION
     Route: 042
     Dates: start: 200704, end: 201203
  3. METHOTREXATE [Suspect]
     Indication: PRODUCT USED FOR UNKNOWN INDICATION
     Route: 048
     Dates: start: 2006, end: 2006
  4. AZATHIOPRINE [Suspect]
     Indication: CROHN^S DISEASE
     Route: 048
     Dates: start: 2006, end: 2006
  5. TAHOR [Concomitant]
     Indication: PRODUCT USED FOR UNKNOWN INDICATION
     Route: 048
     Dates: start: 2006
  6. TAREG [Concomitant]
     Indication: PRODUCT USED FOR UNKNOWN INDICATION
     Route: 048
  7. LEVEMIR [Concomitant]
     Indication: PRODUCT USED FOR UNKNOWN INDICATION
     Dosage: 20 IU IN AM AND 28 IU IN PM
  8. ACTRAPID HM [Concomitant]
     Indication: PRODUCT USED FOR UNKNOWN INDICATION

REACTIONS (4)
  - Hepatic cirrhosis [Unknown]
  - Hepatocellular carcinoma [Not Recovered/Not Resolved]
  - Non-alcoholic steatohepatitis [Unknown]
  - Crohn^s disease [Unknown]
